FAERS Safety Report 13670574 (Version 2)
Quarter: 2017Q3

REPORT INFORMATION
  Report Type: Spontaneous
  Country: US (occurrence: US)
  Receive Date: 20170620
  Receipt Date: 20170911
  Transmission Date: 20171127
  Serious: Yes (Other)
  Sender: FDA-Public Use
  Company Number: US-BAYER-2017-118299

PATIENT
  Age: 24 Year
  Sex: Female
  Weight: 56.24 kg

DRUGS (1)
  1. MIRENA [Suspect]
     Active Substance: LEVONORGESTREL
     Indication: CONTRACEPTION
     Dosage: 20 MCG/24HR, CONT
     Route: 015
     Dates: start: 20160728, end: 20170615

REACTIONS (9)
  - Vaginal discharge [None]
  - Device issue [None]
  - Pelvic pain [Recovered/Resolved]
  - Dyspareunia [None]
  - Tachycardia [None]
  - Device dislocation [None]
  - Abdominal pain lower [None]
  - Breast discharge [None]
  - Bacterial vulvovaginitis [None]

NARRATIVE: CASE EVENT DATE: 20160919
